FAERS Safety Report 14431624 (Version 5)
Quarter: 2018Q1

REPORT INFORMATION
  Report Type: Report from Study
  Country: None (occurrence: ES)
  Receive Date: 20180124
  Receipt Date: 20180216
  Transmission Date: 20180509
  Serious: Yes (Death, Life-Threatening, Hospitalization, Other)
  Sender: FDA-Public Use
  Company Number: ES-ABBVIE-18K-144-2232944-00

PATIENT
  Age: 77 Year
  Sex: Male

DRUGS (1)
  1. DUODOPA [Suspect]
     Active Substance: CARBIDOPA\LEVODOPA
     Indication: PARKINSON^S DISEASE
     Route: 050
     Dates: start: 20111201

REACTIONS (11)
  - Gangrene [Fatal]
  - Embedded device [Unknown]
  - Decubitus ulcer [Unknown]
  - Respiratory tract infection [Fatal]
  - Gastrointestinal haemorrhage [Fatal]
  - Peripheral arterial occlusive disease [Fatal]
  - Localised infection [Fatal]
  - Sepsis [Fatal]
  - Gastrointestinal haemorrhage [Recovered/Resolved]
  - Duodenal ulcer [Fatal]
  - Pain [Not Recovered/Not Resolved]

NARRATIVE: CASE EVENT DATE: 2018
